FAERS Safety Report 9124776 (Version 1)
Quarter: 2013Q1

REPORT INFORMATION
  Report Type: Spontaneous
  Country: DE (occurrence: DE)
  Receive Date: 20130121
  Receipt Date: 20130121
  Transmission Date: 20140127
  Serious: Yes (Hospitalization)
  Sender: FDA-Public Use
  Company Number: DE-ASTRAZENECA-2013SE03748

PATIENT
  Age: 0 Year
  Sex: Male

DRUGS (2)
  1. SYNAGIS [Suspect]
     Route: 030
     Dates: start: 20121211, end: 20121211
  2. SYNAGIS [Suspect]
     Route: 030
     Dates: start: 20130109

REACTIONS (3)
  - Inguinal hernia [Recovered/Resolved]
  - Thrombocytopenia [Recovered/Resolved]
  - Muscle spasms [Recovered/Resolved]
